FAERS Safety Report 17756672 (Version 1)
Quarter: 2020Q2

REPORT INFORMATION
  Report Type: Spontaneous
  Country: CA (occurrence: CA)
  Receive Date: 20200507
  Receipt Date: 20200507
  Transmission Date: 20200714
  Serious: Yes (Other)
  Sender: FDA-Public Use
  Company Number: CA-HORIZON-VIM-0059-2020

PATIENT
  Age: 51 Year
  Sex: Female

DRUGS (2)
  1. COLCHICINE. [Concomitant]
     Active Substance: COLCHICINE
  2. VIMOVO [Suspect]
     Active Substance: ESOMEPRAZOLE MAGNESIUM\NAPROXEN
     Indication: PERICARDITIS
     Dosage: 1 EVERYDAY
     Route: 048

REACTIONS (5)
  - Abdominal discomfort [Unknown]
  - Asthenia [Unknown]
  - Malaise [Unknown]
  - Sensory loss [Unknown]
  - Headache [Unknown]
